FAERS Safety Report 22061796 (Version 1)
Quarter: 2023Q1

REPORT INFORMATION
  Report Type: Report from Study
  Country: CO (occurrence: CO)
  Receive Date: 20230304
  Receipt Date: 20230304
  Transmission Date: 20230418
  Serious: Yes (Hospitalization, Other)
  Sender: FDA-Public Use
  Company Number: CO-ABBVIE-22K-036-4481336-00

PATIENT
  Sex: Female
  Weight: 56 kg

DRUGS (2)
  1. HUMIRA [Suspect]
     Active Substance: ADALIMUMAB
     Indication: Rheumatoid arthritis
     Dosage: FORM STRENGTH: 40MG
     Route: 058
     Dates: start: 20180403, end: 20220719
  2. SULFASALAZINE [Concomitant]
     Active Substance: SULFASALAZINE
     Indication: Product used for unknown indication
     Route: 065
     Dates: end: 2022

REACTIONS (7)
  - Cholelithiasis [Recovering/Resolving]
  - Inflammation [Recovering/Resolving]
  - Weight decreased [Not Recovered/Not Resolved]
  - Post procedural infection [Recovering/Resolving]
  - Eating disorder [Not Recovered/Not Resolved]
  - Post procedural haematoma [Recovering/Resolving]
  - Nephrolithiasis [Not Recovered/Not Resolved]

NARRATIVE: CASE EVENT DATE: 20220101
